FAERS Safety Report 14324197 (Version 7)
Quarter: 2024Q4

REPORT INFORMATION
  Report Type: Spontaneous
  Country: FR (occurrence: GB)
  Receive Date: 20171226
  Receipt Date: 20241108
  Transmission Date: 20250115
  Serious: Yes (Other)
  Sender: NOVARTIS
  Company Number: PHHY2017GB192802

PATIENT
  Age: 6 Year
  Sex: Male

DRUGS (16)
  1. FLUDARABINE [Suspect]
     Active Substance: FLUDARABINE PHOSPHATE
     Indication: Prophylaxis against graft versus host disease
     Dosage: 150 MG/M2
     Route: 041
  2. CYCLOSPORINE [Suspect]
     Active Substance: CYCLOSPORINE
     Indication: Prophylaxis against graft versus host disease
     Dosage: UNK
     Route: 065
  3. MYCOPHENOLATE MOFETIL [Suspect]
     Active Substance: MYCOPHENOLATE MOFETIL
     Indication: Prophylaxis against graft versus host disease
     Dosage: UNK
     Route: 065
  4. LAPINE T-LYMPHOCYTE IMMUNE GLOBULIN [Suspect]
     Active Substance: LAPINE T-LYMPHOCYTE IMMUNE GLOBULIN
     Indication: Bone marrow conditioning regimen
     Dosage: UNK
     Route: 065
  5. ALEMTUZUMAB [Suspect]
     Active Substance: ALEMTUZUMAB
     Indication: Allogenic stem cell transplantation
     Dosage: 1 MG/KG
     Route: 041
  6. ALEMTUZUMAB [Suspect]
     Active Substance: ALEMTUZUMAB
     Dosage: 1MG/KG
     Route: 042
  7. MELPHALAN [Suspect]
     Active Substance: MELPHALAN
     Indication: Allogenic stem cell transplantation
     Dosage: 140 MG/M2
     Route: 042
  8. MELPHALAN [Suspect]
     Active Substance: MELPHALAN
     Indication: Bone marrow conditioning regimen
  9. LINEZOLID [Concomitant]
     Active Substance: LINEZOLID
     Indication: Mycobacterial infection
     Dosage: UNK
     Route: 065
  10. ISONIAZID [Concomitant]
     Active Substance: ISONIAZID
     Indication: Mycobacterial infection
     Dosage: UNK
     Route: 065
  11. MOXIFLOXACIN [Concomitant]
     Active Substance: MOXIFLOXACIN
     Indication: Mycobacterial infection
     Dosage: UNK
     Route: 065
  12. CIPROFLOXACIN [Concomitant]
     Active Substance: CIPROFLOXACIN
     Indication: Mycobacterial infection
     Dosage: UNK
     Route: 065
  13. AMIKACIN [Concomitant]
     Active Substance: AMIKACIN
     Indication: Mycobacterial infection
     Dosage: UNK
     Route: 065
  14. AMIKACIN [Concomitant]
     Active Substance: AMIKACIN
     Route: 065
  15. ETHAMBUTOL [Concomitant]
     Active Substance: ETHAMBUTOL HYDROCHLORIDE
     Indication: Mycobacterial infection
     Dosage: UNK
     Route: 065
  16. INTERFERON GAMMA [Concomitant]
     Active Substance: INTERFERON GAMMA
     Indication: Mycobacterium avium complex infection
     Dosage: UNK
     Route: 065

REACTIONS (7)
  - Skin papilloma [Unknown]
  - Mucosal inflammation [Unknown]
  - Herpes zoster meningoencephalitis [Unknown]
  - Neutropenia [Unknown]
  - Papilloma [Unknown]
  - Herpes zoster [Unknown]
  - Product use issue [Unknown]
